FAERS Safety Report 8230311-3 (Version None)
Quarter: 2012Q1

REPORT INFORMATION
  Report Type: 
  Country: None (occurrence: None)
  Receive Date: 20120323
  Receipt Date: 20120319
  Transmission Date: 20120608
  Serious: No
  Sender: FDA-Public Use
  Company Number: US-PFIZER INC-2012071958

PATIENT
  Sex: Male
  Weight: 97.51 kg

DRUGS (1)
  1. ATORVASTATIN CALCIUM [Suspect]
     Indication: BLOOD CHOLESTEROL
     Dosage: 40 MG, DAILY
     Route: 048
     Dates: start: 20120201

REACTIONS (3)
  - RHINORRHOEA [None]
  - DECREASED APPETITE [None]
  - NASOPHARYNGITIS [None]
